FAERS Safety Report 19031136 (Version 1)
Quarter: 2021Q1

REPORT INFORMATION
  Report Type: Spontaneous
  Country: US (occurrence: US)
  Receive Date: 20210319
  Receipt Date: 20210319
  Transmission Date: 20210420
  Serious: No
  Sender: FDA-Public Use
  Company Number: US-BAYER-2021-107356

PATIENT
  Age: 83 Year
  Sex: Female

DRUGS (1)
  1. CLARITIN [Suspect]
     Active Substance: LORATADINE
     Indication: SLEEP DISORDER
     Dosage: 1 DF, QD
     Route: 048
     Dates: end: 20210316

REACTIONS (1)
  - Drug effective for unapproved indication [Unknown]
